FAERS Safety Report 15248196 (Version 1)
Quarter: 2018Q3

REPORT INFORMATION
  Report Type: Spontaneous
  Country: US (occurrence: US)
  Receive Date: 20180807
  Receipt Date: 20180807
  Transmission Date: 20181010
  Serious: No
  Sender: FDA-Public Use
  Company Number: US-009507513-1808USA002260

PATIENT
  Age: 26 Year
  Sex: Female
  Weight: 27.2 kg

DRUGS (1)
  1. DIPROLENE [Suspect]
     Active Substance: BETAMETHASONE DIPROPIONATE
     Dosage: 12 MG, UNK

REACTIONS (1)
  - Maternal exposure during pregnancy [Unknown]
